FAERS Safety Report 20204351 (Version 2)
Quarter: 2022Q1

REPORT INFORMATION
  Report Type: Spontaneous
  Country: US (occurrence: US)
  Receive Date: 20211220
  Receipt Date: 20220202
  Transmission Date: 20220424
  Serious: Yes (Hospitalization, Other)
  Sender: FDA-Public Use
  Company Number: US-NOVOPROD-876522

PATIENT
  Age: 92 Year
  Sex: Female

DRUGS (1)
  1. OZEMPIC [Suspect]
     Active Substance: SEMAGLUTIDE
     Indication: Product used for unknown indication
     Dosage: 0.25 MG, QW
     Route: 058
     Dates: start: 20211206

REACTIONS (11)
  - Pneumonia [Unknown]
  - Drug intolerance [Not Recovered/Not Resolved]
  - Tongue discolouration [Unknown]
  - Feeding disorder [Unknown]
  - Insomnia [Unknown]
  - Malaise [Unknown]
  - Weight decreased [Unknown]
  - Abdominal discomfort [Unknown]
  - Dysgeusia [Unknown]
  - Constipation [Unknown]
  - Fatigue [Unknown]

NARRATIVE: CASE EVENT DATE: 20211201
